FAERS Safety Report 9113389 (Version 1)
Quarter: 2013Q1

REPORT INFORMATION
  Report Type: Report from Study
  Country: DE (occurrence: DE)
  Receive Date: 20130131
  Receipt Date: 20130131
  Transmission Date: 20140127
  Serious: Yes (Other)
  Sender: FDA-Public Use
  Company Number: DE-MERCK-1301DEU013003

PATIENT
  Age: 16 Year
  Sex: Female
  Weight: 50 kg

DRUGS (18)
  1. POSACONAZOLE [Suspect]
     Indication: PROPHYLAXIS
     Dosage: 300 MG, TID
     Route: 048
     Dates: start: 20130123, end: 20130125
  2. ONDANSETRON [Concomitant]
     Indication: NAUSEA
     Dosage: 8 MG, BID
     Route: 042
     Dates: start: 20130121
  3. PENICILLIN V [Concomitant]
     Indication: PROPHYLAXIS
     Dosage: 1.2 MG, TID
     Route: 048
     Dates: start: 20130121, end: 20130123
  4. METHOTREXATE [Concomitant]
     Indication: PROPHYLAXIS
     Dosage: 160 MG, BID
     Route: 048
     Dates: start: 20130121, end: 20130122
  5. APREPITANT [Concomitant]
     Indication: NAUSEA
     Dosage: 125 MG, QD
     Route: 048
     Dates: start: 20130121, end: 20130121
  6. APREPITANT [Concomitant]
     Dosage: 80 MG, QD
     Route: 048
     Dates: start: 20130122
  7. CIPROFLOXACIN [Concomitant]
     Indication: PROPHYLAXIS
     Dosage: 500 MG, BID
     Route: 048
     Dates: start: 20130121, end: 20130123
  8. AMPHOTERICIN B [Concomitant]
     Indication: PROPHYLAXIS
     Dosage: UNK, TID
     Route: 061
     Dates: start: 20130121
  9. ONDANSETRON [Concomitant]
     Indication: NAUSEA
     Dosage: 8 MG, BID
     Route: 048
     Dates: start: 20130125
  10. TAMOXIFEN CITRATE [Concomitant]
     Indication: NEOPLASM MALIGNANT
     Dosage: 18500MG,QD
     Route: 042
     Dates: start: 20130121, end: 20130123
  11. FINASTERIDE [Concomitant]
     Indication: PROPHYLAXIS
     Dosage: 1.5 MG, QD
     Route: 042
     Dates: start: 20130125
  12. PREDNISONE [Concomitant]
     Indication: PROPHYLAXIS
     Dosage: 100 MG, PRN
     Route: 042
     Dates: start: 20130125
  13. PENICILLIN (UNSPECIFIED) [Concomitant]
     Indication: PROPHYLAXIS
     Dosage: 1.0 IE, TID
     Route: 042
     Dates: start: 20130123
  14. MELPHALAN [Concomitant]
     Indication: NEOPLASM MALIGNANT
     Dosage: 216 MG, QD
     Route: 042
     Dates: start: 20130124, end: 20130124
  15. CIPROFLOXACIN [Concomitant]
     Indication: PROPHYLAXIS
     Dosage: 400 MG, BID
     Route: 042
     Dates: start: 20130123
  16. ACYCLOVIR [Concomitant]
     Indication: PROPHYLAXIS
     Dosage: 250 MG, TID
     Route: 042
     Dates: start: 20130125
  17. METOCLOPRAMIDE [Concomitant]
     Indication: NAUSEA
     Dosage: 5 MG, PRN
     Route: 048
     Dates: start: 20130123
  18. DIMENHYDRINATE [Concomitant]
     Indication: NAUSEA
     Dosage: 100 MG, PRN
     Route: 042
     Dates: start: 20130122

REACTIONS (1)
  - Electrocardiogram T wave inversion [Unknown]
